FAERS Safety Report 15855538 (Version 1)
Quarter: 2019Q1

REPORT INFORMATION
  Report Type: Spontaneous
  Country: US (occurrence: US)
  Receive Date: 20190122
  Receipt Date: 20190122
  Transmission Date: 20190417
  Serious: No
  Sender: FDA-Public Use
  Company Number: US-B. BRAUN MEDICAL INC.-2061581

PATIENT
  Sex: Female

DRUGS (1)
  1. DEXTROSE AND SODIUM CHLORIDE INJECTIONS USP 0264-7605-00 0264-7605-10 [Suspect]
     Active Substance: DEXTROSE\SODIUM CHLORIDE

REACTIONS (4)
  - Nausea [None]
  - Malaise [None]
  - Disorientation [None]
  - Tremor [None]
